FAERS Safety Report 4881911-X (Version None)
Quarter: 2006Q1

REPORT INFORMATION
  Report Type: 
  Country: None (occurrence: None)
  Receive Date: 20060117
  Receipt Date: 20060106
  Transmission Date: 20060701
  Serious: Yes (Other)
  Sender: FDA-Public Use
  Company Number: PHEH2006US00670

PATIENT
  Age: 71 Year
  Sex: Female

DRUGS (7)
  1. DIOVAN [Suspect]
     Indication: HYPERTENSION
     Dosage: 160 MG, QD
     Route: 048
  2. LOTREL [Suspect]
     Indication: HYPERTENSION
     Dosage: 20 MG AMLOD/40 MG BENAZ QD
     Route: 048
  3. LOTREL [Suspect]
     Dosage: 5 MG AMLOD/10 MG BENAZ QD
  4. LOTREL [Suspect]
     Dosage: 10 MG AMLOD/20 MG BENAZ QD
  5. PREDNISONE [Concomitant]
     Indication: FIBROMYALGIA
     Dosage: 5 MG, QD
  6. VIOXX [Suspect]
  7. CELEBREX [Suspect]

REACTIONS (4)
  - BLOOD URINE PRESENT [None]
  - KNEE ARTHROPLASTY [None]
  - PROTEIN URINE [None]
  - RENAL IMPAIRMENT [None]
